FAERS Safety Report 9558617 (Version 1)
Quarter: 2013Q3

REPORT INFORMATION
  Report Type: Spontaneous
  Country: US (occurrence: US)
  Receive Date: 20130926
  Receipt Date: 20130926
  Transmission Date: 20140515
  Serious: No
  Sender: FDA-Public Use
  Company Number: US-BIOGENIDEC-2013BI044944

PATIENT
  Age: 28 Year
  Sex: Male

DRUGS (4)
  1. TECFIDERA [Suspect]
     Indication: PRODUCT USED FOR UNKNOWN INDICATION
  2. BACLOFEN [Concomitant]
  3. VITAMINS/ MINERALS [Concomitant]
  4. TIZANIDINE HCL [Concomitant]

REACTIONS (1)
  - Flushing [Unknown]
